FAERS Safety Report 6886241-2 (Version None)
Quarter: 2010Q3

REPORT INFORMATION
  Report Type: 
  Country: None (occurrence: None)
  Receive Date: 20100729
  Receipt Date: 20090325
  Transmission Date: 20110219
  Serious: No
  Sender: FDA-Public Use
  Company Number: US-PFIZER INC-2009174329

PATIENT
  Sex: Male

DRUGS (2)
  1. CORTEF [Suspect]
     Dosage: 5 MG, UNK
  2. HYDROCORTISONE [Suspect]

REACTIONS (2)
  - RASH [None]
  - URTICARIA [None]
